FAERS Safety Report 25578049 (Version 1)
Quarter: 2025Q3

REPORT INFORMATION
  Report Type: Spontaneous
  Country: US (occurrence: US)
  Receive Date: 20250718
  Receipt Date: 20250718
  Transmission Date: 20251021
  Serious: No
  Sender: PFIZER
  Company Number: US-PFIZER INC-202500144819

PATIENT
  Age: 69 Year
  Sex: Female

DRUGS (1)
  1. BUMETANIDE [Suspect]
     Active Substance: BUMETANIDE

REACTIONS (1)
  - Joint swelling [Recovered/Resolved]
